FAERS Safety Report 5317610-X (Version None)
Quarter: 2007Q2

REPORT INFORMATION
  Report Type: 
  Country: None (occurrence: None)
  Receive Date: 20070507
  Receipt Date: 20070425
  Transmission Date: 20071010
  Serious: Yes (Hospitalization)
  Sender: FDA-Public Use
  Company Number: PHHO2007DK07162

PATIENT
  Age: 72 Year
  Sex: Female
  Weight: 46.7 kg

DRUGS (3)
  1. TAMOXIFEN CITRATE [Suspect]
     Dosage: DOUBLE BLIND
     Route: 048
     Dates: start: 20020215
  2. BONVIVA [Concomitant]
  3. OXYCONTIN [Concomitant]

REACTIONS (3)
  - FALL [None]
  - FEMUR FRACTURE [None]
  - OSTEOSYNTHESIS [None]
